FAERS Safety Report 5004411-5 (Version None)
Quarter: 2006Q2

REPORT INFORMATION
  Report Type: 
  Country: None (occurrence: None)
  Receive Date: 20060511
  Receipt Date: 20060429
  Transmission Date: 20061013
  Serious: Yes (Disabling, Other)
  Sender: FDA-Public Use
  Company Number: 2006050923

PATIENT
  Sex: Female

DRUGS (2)
  1. ZYRTEC [Suspect]
     Indication: ILL-DEFINED DISORDER
     Dates: start: 19970101
  2. TOPROL-XL [Suspect]
     Indication: ILL-DEFINED DISORDER

REACTIONS (2)
  - BLOOD GLUCOSE DECREASED [None]
  - EAR PAIN [None]
